FAERS Safety Report 8757620 (Version 5)
Quarter: 2016Q4

REPORT INFORMATION
  Report Type: Spontaneous
  Country: JP (occurrence: JP)
  Receive Date: 20120828
  Receipt Date: 20161216
  Transmission Date: 20170207
  Serious: Yes (Life-Threatening, Hospitalization, Disabling, Other)
  Sender: FDA-Public Use
  Company Number: PHHY2012JP068599

PATIENT
  Age: 63 Year
  Sex: Male

DRUGS (5)
  1. NEORAL [Suspect]
     Active Substance: CYCLOSPORINE
     Indication: NEPHROTIC SYNDROME
     Dosage: 100 MG, QD
     Route: 048
  2. NEORAL [Suspect]
     Active Substance: CYCLOSPORINE
     Dosage: 10 MG, QD (ABOUT 2 MG/KG)
     Route: 048
  3. PREDNISOLONE. [Suspect]
     Active Substance: PREDNISOLONE
     Indication: NEPHROTIC SYNDROME
     Dosage: 50 MG, QD
     Route: 048
  4. NEORAL [Suspect]
     Active Substance: CYCLOSPORINE
     Dosage: 100 MG, QD
     Route: 048
     Dates: start: 2009, end: 20111116
  5. PREDNISOLONE. [Suspect]
     Active Substance: PREDNISOLONE
     Dosage: 35 MG, QD
     Route: 048

REACTIONS (13)
  - Prerenal failure [Not Recovered/Not Resolved]
  - Pain [Unknown]
  - End stage renal disease [Unknown]
  - Drug ineffective [Not Recovered/Not Resolved]
  - Blister [Unknown]
  - Renal impairment [Not Recovered/Not Resolved]
  - Herpes zoster [Recovered/Resolved]
  - Laryngeal mass [Unknown]
  - Laryngeal oedema [Recovered/Resolved]
  - Nephrotic syndrome [Unknown]
  - Respiratory tract congestion [Unknown]
  - Epiglottic oedema [Unknown]
  - Cytomegalovirus infection [Unknown]

NARRATIVE: CASE EVENT DATE: 201111
